FAERS Safety Report 19591963 (Version 2)
Quarter: 2021Q3

REPORT INFORMATION
  Report Type: Report from Study
  Country: CA (occurrence: CA)
  Receive Date: 20210722
  Receipt Date: 20210810
  Transmission Date: 20211014
  Serious: Yes (Hospitalization, Other)
  Sender: FDA-Public Use
  Company Number: CA-ASTRAZENECA-2021A615702

PATIENT
  Age: 26709 Day
  Sex: Male

DRUGS (7)
  1. BRICANYL [Concomitant]
     Active Substance: TERBUTALINE SULFATE
  2. SEEBRI BREEZHALER [Concomitant]
     Active Substance: GLYCOPYRROLATE
  3. ZENHALE [Concomitant]
     Active Substance: FORMOTEROL FUMARATE\MOMETASONE FUROATE
  4. MONTELUKAST [Concomitant]
     Active Substance: MONTELUKAST SODIUM
  5. FASENRA [Suspect]
     Active Substance: BENRALIZUMAB
     Indication: ASTHMA
     Dosage: 30.0MG UNKNOWN
     Route: 058
     Dates: start: 20190430
  6. NUCALA [Concomitant]
     Active Substance: MEPOLIZUMAB
  7. LASIX [Concomitant]
     Active Substance: FUROSEMIDE

REACTIONS (5)
  - Post procedural complication [Unknown]
  - Dysphonia [Not Recovered/Not Resolved]
  - Cardiac valve disease [Unknown]
  - Speech disorder [Unknown]
  - Post procedural haematoma [Recovered/Resolved]

NARRATIVE: CASE EVENT DATE: 20210706
